FAERS Safety Report 5064253-1 (Version None)
Quarter: 2006Q3

REPORT INFORMATION
  Report Type: 
  Country: None (occurrence: None)
  Receive Date: 20060726
  Receipt Date: 20060726
  Transmission Date: 20061208
  Serious: Yes (Hospitalization)
  Sender: FDA-Public Use
  Company Number: None

PATIENT
  Age: 25 Year
  Sex: Male

DRUGS (1)
  1. PROPOFOL [Suspect]
     Indication: SEDATION
     Dates: start: 20060515, end: 20060515

REACTIONS (4)
  - CONTRAINDICATION TO MEDICAL TREATMENT [None]
  - DERMATITIS EXFOLIATIVE [None]
  - PRURITUS [None]
  - STEVENS-JOHNSON SYNDROME [None]
